FAERS Safety Report 21344289 (Version 2)
Quarter: 2022Q3

REPORT INFORMATION
  Report Type: Spontaneous
  Country: JP (occurrence: JP)
  Receive Date: 20220916
  Receipt Date: 20220929
  Transmission Date: 20221026
  Serious: Yes (Hospitalization)
  Sender: FDA-Public Use
  Company Number: JP-NOVARTISPH-NVSC2022JP209710

PATIENT
  Age: 9 Decade
  Sex: Male

DRUGS (4)
  1. RIVASTIGMINE [Suspect]
     Active Substance: RIVASTIGMINE
     Indication: Dementia Alzheimer^s type
     Dosage: 13.5 MG
     Route: 062
  2. RIVASTIGMINE [Suspect]
     Active Substance: RIVASTIGMINE
     Dosage: 18 MG
     Route: 062
  3. RIVASTIGMINE [Suspect]
     Active Substance: RIVASTIGMINE
     Dosage: 13.5 MG (REDUCED)
     Route: 062
  4. RIVASTIGMINE [Suspect]
     Active Substance: RIVASTIGMINE
     Dosage: 4.5 MG
     Route: 062

REACTIONS (6)
  - Sedation complication [Recovered/Resolved]
  - Somnolence [Recovered/Resolved]
  - Poriomania [Recovering/Resolving]
  - Logorrhoea [Recovering/Resolving]
  - Abnormal behaviour [Recovering/Resolving]
  - Insomnia [Unknown]
